FAERS Safety Report 14807856 (Version 2)
Quarter: 2018Q3

REPORT INFORMATION
  Report Type: Report from Study
  Country: AT (occurrence: AT)
  Receive Date: 20180425
  Receipt Date: 20180814
  Transmission Date: 20181010
  Serious: Yes (Other)
  Sender: FDA-Public Use
  Company Number: AT-TEVA-2018-AT-884877

PATIENT
  Age: 44 Year
  Sex: Female
  Weight: 48 kg

DRUGS (27)
  1. PANTOLOC [Concomitant]
     Active Substance: PANTOPRAZOLE SODIUM
     Indication: PRODUCT USED FOR UNKNOWN INDICATION
     Dosage: 40 MILLIGRAM
     Route: 065
  2. GEMCITABINE [Suspect]
     Active Substance: GEMCITABINE\GEMCITABINE HYDROCHLORIDE
     Dosage: 1226 MILLIGRAM/SQ. METER
     Route: 065
     Dates: start: 20170620
  3. GEMCITABINE [Suspect]
     Active Substance: GEMCITABINE\GEMCITABINE HYDROCHLORIDE
     Dosage: 1536 MILLIGRAM/SQ. METER
     Route: 065
     Dates: start: 20170420
  4. ABRAXANE [Suspect]
     Active Substance: PACLITAXEL
     Dosage: 97 MILLIGRAM/SQ. METER
     Route: 041
     Dates: start: 20170523
  5. ZOFRAN [Concomitant]
     Active Substance: ONDANSETRON HYDROCHLORIDE
     Indication: PRODUCT USED FOR UNKNOWN INDICATION
     Route: 065
  6. TRITTICO [Concomitant]
     Active Substance: TRAZODONE HYDROCHLORIDE
     Indication: PRODUCT USED FOR UNKNOWN INDICATION
     Dosage: 150 MILLIGRAM
     Route: 065
  7. GEMCITABINE [Suspect]
     Active Substance: GEMCITABINE\GEMCITABINE HYDROCHLORIDE
     Indication: PANCREATIC CARCINOMA
     Dosage: 1211 MILLIGRAM/SQ. METER
     Route: 065
     Dates: start: 20170523
  8. GEMCITABINE [Suspect]
     Active Substance: GEMCITABINE\GEMCITABINE HYDROCHLORIDE
     Dosage: 1491 MILLIGRAM/SQ. METER
     Route: 065
     Dates: start: 20170420
  9. ABRAXANE [Suspect]
     Active Substance: PACLITAXEL
     Dosage: 191 MILLIGRAM/SQ. METER
     Route: 041
     Dates: start: 20170323
  10. ABRAXANE [Suspect]
     Active Substance: PACLITAXEL
     Indication: PANCREATIC CARCINOMA
     Dosage: 151 MILLIGRAM/SQ. METER
     Route: 041
     Dates: start: 20170420
  11. ABRAXANE [Suspect]
     Active Substance: PACLITAXEL
     Dosage: 189 MILLIGRAM/SQ. METER
     Route: 041
     Dates: start: 20170420
  12. MOVICOL [Suspect]
     Active Substance: POLYETHYLENE GLYCOL 3350\POTASSIUM CHLORIDE\SODIUM BICARBONATE\SODIUM CHLORIDE
     Indication: PRODUCT USED FOR UNKNOWN INDICATION
     Route: 065
  13. CONCOR [Concomitant]
     Active Substance: BISOPROLOL FUMARATE
     Indication: PRODUCT USED FOR UNKNOWN INDICATION
     Route: 065
  14. LOVENOX [Concomitant]
     Active Substance: ENOXAPARIN SODIUM
     Indication: PRODUCT USED FOR UNKNOWN INDICATION
     Route: 065
     Dates: start: 20170420, end: 20170508
  15. GEMCITABINE [Suspect]
     Active Substance: GEMCITABINE\GEMCITABINE HYDROCHLORIDE
     Dosage: 1226 MILLIGRAM/SQ. METER
     Route: 065
     Dates: start: 20170523
  16. ABRAXANE [Suspect]
     Active Substance: PACLITAXEL
     Dosage: 151 MILLIGRAM/SQ. METER
     Route: 041
     Dates: start: 20170620
  17. ABRAXANE [Suspect]
     Active Substance: PACLITAXEL
     Dosage: 189 MILLIGRAM/SQ. METER
     Route: 041
     Dates: start: 20170323
  18. GEMCITABINE [Suspect]
     Active Substance: GEMCITABINE\GEMCITABINE HYDROCHLORIDE
     Dosage: 1494 MILLIGRAM/SQ. METER
     Route: 065
     Dates: start: 20170323
  19. GEMCITABINE [Suspect]
     Active Substance: GEMCITABINE\GEMCITABINE HYDROCHLORIDE
     Dosage: 1176 MILLIGRAM/SQ. METER
     Route: 065
     Dates: start: 20170620
  20. GEMCITABINE [Suspect]
     Active Substance: GEMCITABINE\GEMCITABINE HYDROCHLORIDE
     Dosage: 1233 MILLIGRAM/SQ. METER
     Route: 065
     Dates: start: 20170620
  21. NEON [Concomitant]
     Indication: PRODUCT USED FOR UNKNOWN INDICATION
     Route: 065
  22. LOVENOX [Concomitant]
     Active Substance: ENOXAPARIN SODIUM
     Route: 065
     Dates: start: 20170509
  23. GEMCITABINE [Suspect]
     Active Substance: GEMCITABINE\GEMCITABINE HYDROCHLORIDE
     Dosage: 1199 MILLIGRAM/SQ. METER
     Route: 065
     Dates: start: 20170523
  24. NOVALGIN (CAFFEINE\PARACETAMOL\PROPYPHENAZONE) [Concomitant]
     Active Substance: ACETAMINOPHEN\CAFFEINE\PROPYPHENAZONE
     Indication: PRODUCT USED FOR UNKNOWN INDICATION
     Dosage: 756?500 MILLIGRAM
     Route: 065
  25. GEMCITABINE [Suspect]
     Active Substance: GEMCITABINE\GEMCITABINE HYDROCHLORIDE
     Dosage: 1511 MILLIGRAM/SQ. METER
     Route: 065
     Dates: start: 20170323
  26. ABRAXANE [Suspect]
     Active Substance: PACLITAXEL
     Dosage: 151 MILLIGRAM/SQ. METER
     Route: 041
     Dates: start: 20170523
  27. XANAX [Concomitant]
     Active Substance: ALPRAZOLAM
     Indication: PRODUCT USED FOR UNKNOWN INDICATION
     Route: 065

REACTIONS (5)
  - Pancreatic carcinoma [Unknown]
  - Liver function test increased [Recovered/Resolved]
  - Thrombocytopenia [Recovered/Resolved]
  - Polyneuropathy [Recovered/Resolved]
  - Diarrhoea [Recovered/Resolved]

NARRATIVE: CASE EVENT DATE: 2017
